FAERS Safety Report 24120126 (Version 3)
Quarter: 2025Q2

REPORT INFORMATION
  Report Type: Spontaneous
  Country: FR (occurrence: FR)
  Receive Date: 20240722
  Receipt Date: 20250620
  Transmission Date: 20250717
  Serious: Yes (Hospitalization, Other)
  Sender: PFIZER
  Company Number: None

PATIENT
  Age: 75 Year
  Sex: Female
  Weight: 120 kg

DRUGS (16)
  1. XALKORI [Suspect]
     Active Substance: CRIZOTINIB
     Indication: Lung adenocarcinoma
     Dosage: 250 MG, 2X/DAY
     Route: 048
     Dates: start: 20240319
  2. XALKORI [Suspect]
     Active Substance: CRIZOTINIB
     Dosage: 200 MG, 2X/DAY
     Route: 048
     Dates: start: 20240514
  3. XALKORI [Suspect]
     Active Substance: CRIZOTINIB
     Dosage: MORNING AND EVENING
     Route: 048
     Dates: start: 20240611, end: 20240617
  4. XALKORI [Suspect]
     Active Substance: CRIZOTINIB
     Dosage: 250 MG, 2X/DAY
     Dates: start: 20240619
  5. DIOSMIN\HESPERIDIN [Concomitant]
     Active Substance: DIOSMIN\HESPERIDIN
     Dosage: 0-0-2
  6. REPAGLINIDE [Concomitant]
     Active Substance: REPAGLINIDE
     Dosage: 2-2-2
  7. FENTANYL [Concomitant]
     Active Substance: FENTANYL
     Dates: start: 20231219
  8. PREDNISONE [Concomitant]
     Active Substance: PREDNISONE
     Dosage: 1-0-0
     Dates: start: 20231219
  9. CYANOCOBALAMIN [Concomitant]
     Active Substance: CYANOCOBALAMIN
     Dosage: ON WEDNESDAYS AT 16:00
  10. GABAPENTIN [Concomitant]
     Active Substance: GABAPENTIN
     Dosage: 0 -100 MG -100 MG - 200 MG
  11. XULTOPHY 100/3.6 [Concomitant]
     Active Substance: INSULIN DEGLUDEC\LIRAGLUTIDE
     Dosage: AT BEDTIME
  12. CHOLECALCIFEROL [Concomitant]
     Active Substance: CHOLECALCIFEROL
     Dosage: AT THE MORNING
  13. METFORMIN [Concomitant]
     Active Substance: METFORMIN HYDROCHLORIDE
     Dosage: 0-0-1
  14. FOLIC ACID [Concomitant]
     Active Substance: FOLIC ACID
     Dosage: 1-0-0
  15. PERINDOPRIL [Concomitant]
     Active Substance: PERINDOPRIL
     Dosage: 1-0-0
  16. ESOMEPRAZOLE [Concomitant]
     Active Substance: ESOMEPRAZOLE
     Dosage: 1-0-0

REACTIONS (9)
  - Cerebrovascular accident [Recovered/Resolved with Sequelae]
  - Renal failure [Unknown]
  - Oedema [Recovered/Resolved]
  - Thrombocytosis [Recovering/Resolving]
  - Anaemia [Unknown]
  - C-reactive protein increased [Unknown]
  - High density lipoprotein decreased [Unknown]
  - Blood triglycerides increased [Unknown]
  - Blood iron increased [Unknown]

NARRATIVE: CASE EVENT DATE: 20240617
